FAERS Safety Report 4738901-7 (Version None)
Quarter: 2005Q3

REPORT INFORMATION
  Report Type: 
  Country: None (occurrence: None)
  Receive Date: 20050809
  Receipt Date: 20050802
  Transmission Date: 20060218
  Serious: Yes (Hospitalization)
  Sender: FDA-Public Use
  Company Number: NO-MERCK-0508NOR00001

PATIENT
  Age: 57 Year
  Sex: Male

DRUGS (13)
  1. VIOXX [Suspect]
     Indication: ANKYLOSING SPONDYLITIS
     Route: 048
     Dates: start: 20010101, end: 20020501
  2. VIOXX [Suspect]
     Route: 048
     Dates: start: 20030501, end: 20031101
  3. DESLORATADINE [Concomitant]
     Route: 048
  4. TOLTERODINE TARTRATE [Concomitant]
     Route: 048
  5. MIRTAZAPINE [Concomitant]
     Route: 065
  6. ESOMEPRAZOLE MAGNESIUM [Concomitant]
     Route: 065
  7. PRAVASTATIN SODIUM [Concomitant]
     Route: 065
  8. CLONAZEPAM [Concomitant]
     Route: 065
  9. PENTAZOCINE HYDROCHLORIDE [Concomitant]
     Route: 065
  10. CARISOPRODOL [Concomitant]
     Route: 065
  11. SUMATRIPTAN [Concomitant]
     Route: 055
  12. NAPROXEN [Concomitant]
     Route: 048
     Dates: start: 20020501, end: 20030501
  13. CELECOXIB [Concomitant]
     Route: 065
     Dates: start: 20031101, end: 20041001

REACTIONS (5)
  - BLOOD PRESSURE INCREASED [None]
  - COR PULMONALE ACUTE [None]
  - DEEP VEIN THROMBOSIS [None]
  - OEDEMA PERIPHERAL [None]
  - PULMONARY EMBOLISM [None]
